FAERS Safety Report 17457449 (Version 2)
Quarter: 2020Q2

REPORT INFORMATION
  Report Type: Spontaneous
  Country: US (occurrence: US)
  Receive Date: 20200225
  Receipt Date: 20200409
  Transmission Date: 20200713
  Serious: No
  Sender: FDA-Public Use
  Company Number: US-JNJFOC-20200205970

PATIENT
  Sex: Female

DRUGS (1)
  1. PEPCID AC [Suspect]
     Active Substance: FAMOTIDINE
     Indication: GASTROOESOPHAGEAL REFLUX DISEASE
     Dosage: 2 TABLETS IN THE MORNING AND 2 TABLETS AT NIGHT 2X EVERYDAY; LAST ADMINISTERED DATE: 02/FEB/2020
     Route: 048

REACTIONS (3)
  - Product taste abnormal [Unknown]
  - Overdose [Unknown]
  - Product odour abnormal [Unknown]
